FAERS Safety Report 4533238-3 (Version None)
Quarter: 2004Q4

REPORT INFORMATION
  Report Type: 
  Country: None (occurrence: None)
  Receive Date: 20041107
  Receipt Date: 20040712
  Transmission Date: 20050328
  Serious: Yes (Hospitalization)
  Sender: FDA-Public Use
  Company Number: 800053

PATIENT
  Age: 20 Year
  Sex: Female
  Weight: 48.6 kg

DRUGS (18)
  1. DIANEAL [Suspect]
     Indication: PERITONEAL DIALYSIS
     Dosage: 15 L;QD;INTRAPERITONEAL
     Route: 033
     Dates: start: 20020101
  2. DIANEAL [Suspect]
  3. DIANEAL [Suspect]
  4. DIANEAL [Suspect]
  5. DIANEAL [Suspect]
  6. ZINC [Concomitant]
  7. VITAMIN C [Concomitant]
  8. HECTOROL [Concomitant]
  9. FERROUS SULFATE TAB [Concomitant]
  10. PAXIL [Concomitant]
  11. NEPHRO-VITE RX [Concomitant]
  12. PROTONIX [Concomitant]
  13. ESTROSTEP [Concomitant]
  14. SINGULAIR [Concomitant]
  15. VIOXX [Concomitant]
  16. ENARAX [Concomitant]
  17. ALLEGRA [Concomitant]
  18. RENAGEL [Concomitant]

REACTIONS (1)
  - PERITONITIS BACTERIAL [None]
